FAERS Safety Report 15840932 (Version 1)
Quarter: 2019Q1

REPORT INFORMATION
  Report Type: Spontaneous
  Country: US (occurrence: US)
  Receive Date: 20190118
  Receipt Date: 20190118
  Transmission Date: 20190417
  Serious: Yes (Death, Life-Threatening, Hospitalization, Other)
  Sender: FDA-Public Use
  Company Number: US-HIKMA PHARMACEUTICALS USA INC.-US-H14001-19-00162

PATIENT
  Age: 58 Year
  Sex: Female

DRUGS (5)
  1. MEROPENEM. [Concomitant]
     Active Substance: MEROPENEM
     Indication: ENTEROBACTER INFECTION
     Dosage: ()
     Route: 065
  2. HEPARIN [Suspect]
     Active Substance: HEPARIN SODIUM
     Indication: THROMBOSIS PROPHYLAXIS
     Dosage: LOW-INTENSITY HEPARIN DRIP
     Route: 041
  3. AMIKACIN. [Concomitant]
     Active Substance: AMIKACIN
     Indication: ENTEROBACTER INFECTION
     Dosage: ()
     Route: 065
  4. HYDROCORTISONE. [Suspect]
     Active Substance: HYDROCORTISONE
     Indication: BACTERAEMIA
     Dosage: STRESS DOSE HYDROCORTISONE
     Route: 065
  5. ISAVUCONAZOLE [Concomitant]
     Active Substance: ISAVUCONAZOLE
     Indication: MUCORMYCOSIS
     Dosage: ()

REACTIONS (15)
  - Metabolic acidosis [Unknown]
  - Peritoneal haemorrhage [Not Recovered/Not Resolved]
  - Off label use [Unknown]
  - Peritoneal haematoma [Unknown]
  - Hepatic cirrhosis [Not Recovered/Not Resolved]
  - Haemorrhage intracranial [Unknown]
  - Retroperitoneal haemorrhage [Not Recovered/Not Resolved]
  - Hyperlactacidaemia [Unknown]
  - Hepatic necrosis [Not Recovered/Not Resolved]
  - Coagulopathy [Not Recovered/Not Resolved]
  - Acute hepatic failure [Not Recovered/Not Resolved]
  - Herpes simplex hepatitis [Fatal]
  - Herpes simplex [Fatal]
  - Ischaemic hepatitis [Not Recovered/Not Resolved]
  - Retroperitoneal haematoma [Unknown]
